FAERS Safety Report 25483016 (Version 1)
Quarter: 2025Q2

REPORT INFORMATION
  Report Type: Spontaneous
  Country: US (occurrence: None)
  Receive Date: 20250625
  Receipt Date: 20250625
  Transmission Date: 20250717
  Serious: Yes (Hospitalization)
  Sender: FDA-CTU
  Company Number: None

PATIENT
  Age: 38 Year
  Sex: Female
  Weight: 68 kg

DRUGS (10)
  1. ZURZUVAE [Suspect]
     Active Substance: ZURANOLONE
     Indication: Perinatal depression
     Dosage: 25 MG DAILY ORAL
     Route: 048
     Dates: start: 20250622, end: 20250623
  2. buspirione [Concomitant]
     Dates: start: 20250111
  3. ESCITALOPRAM [Concomitant]
     Active Substance: ESCITALOPRAM OXALATE
     Dates: start: 20250111
  4. FAMOTIDINE [Concomitant]
     Active Substance: FAMOTIDINE
     Dates: start: 20250111
  5. LEVOTHYROXINE [Concomitant]
     Active Substance: LEVOTHYROXINE
     Dates: start: 20250111
  6. NORETHINDRONE [Concomitant]
     Active Substance: NORETHINDRONE
     Dates: start: 20250619
  7. PANTOPRAZOLE [Concomitant]
     Active Substance: PANTOPRAZOLE
     Dates: start: 20250111
  8. QUETIAPINE [Concomitant]
     Active Substance: QUETIAPINE
     Dates: start: 20250409
  9. LORAZEPAM [Concomitant]
     Active Substance: LORAZEPAM
     Dates: start: 20250604
  10. DOXYCYCLINE [Concomitant]
     Active Substance: DOXYCYCLINE
     Dates: start: 20250520, end: 20250530

REACTIONS (7)
  - Diarrhoea [None]
  - Pancreatitis necrotising [None]
  - Abdominal distension [None]
  - Urine output decreased [None]
  - Leukocytosis [None]
  - Hepatic steatosis [None]
  - Hepatomegaly [None]

NARRATIVE: CASE EVENT DATE: 20250623
